FAERS Safety Report 16516397 (Version 1)
Quarter: 2019Q3

REPORT INFORMATION
  Report Type: Spontaneous
  Country: US (occurrence: US)
  Receive Date: 20190702
  Receipt Date: 20190702
  Transmission Date: 20191004
  Serious: No
  Sender: FDA-Public Use
  Company Number: US-PFM-2019-00277

PATIENT

DRUGS (4)
  1. HEMANGEOL [Suspect]
     Active Substance: PROPRANOLOL HYDROCHLORIDE
     Dosage: 1.6 ML, BID (2/DAY)
     Route: 048
     Dates: start: 201810
  2. HEMANGEOL [Suspect]
     Active Substance: PROPRANOLOL HYDROCHLORIDE
     Dosage: 1.2 ML, BID (2/DAY)
     Route: 048
     Dates: end: 201810
  3. HEMANGEOL [Suspect]
     Active Substance: PROPRANOLOL HYDROCHLORIDE
     Indication: INFANTILE HAEMANGIOMA
     Dosage: 0.3 ML, BID (2/DAY)
     Route: 048
     Dates: start: 201808
  4. HEMANGEOL [Suspect]
     Active Substance: PROPRANOLOL HYDROCHLORIDE
     Dosage: 0.6 ML, BID (2/DAY)
     Route: 048

REACTIONS (4)
  - Cyanosis [Unknown]
  - Weight increased [Unknown]
  - Drug titration error [Unknown]
  - Off label use [Unknown]

NARRATIVE: CASE EVENT DATE: 201811
